FAERS Safety Report 9296806 (Version 5)
Quarter: 2014Q3

REPORT INFORMATION
  Report Type: Spontaneous
  Country: US (occurrence: US)
  Receive Date: 20130517
  Receipt Date: 20140708
  Transmission Date: 20150326
  Serious: Yes (Hospitalization)
  Sender: FDA-Public Use
  Company Number: US-009507513-1305USA010167

PATIENT
  Weight: 94 kg

DRUGS (3)
  1. PROPECIA [Suspect]
     Active Substance: FINASTERIDE
     Dosage: 1MG DAILY
     Route: 048
     Dates: start: 20040503
  2. FINASTERIDE. [Suspect]
     Active Substance: FINASTERIDE
     Indication: ALOPECIA
     Dosage: 1 MG, UNK
     Route: 048
     Dates: start: 20031125
  3. PROPECIA [Suspect]
     Active Substance: FINASTERIDE
     Indication: ALOPECIA
     Dosage: 1 MG, QD
     Route: 048
     Dates: start: 20011129, end: 20031125

REACTIONS (22)
  - Anogenital warts [Unknown]
  - Loss of libido [Not Recovered/Not Resolved]
  - Drug ineffective [Unknown]
  - Joint dislocation [Unknown]
  - Muscle spasms [Unknown]
  - Muscle tightness [Unknown]
  - Back pain [Unknown]
  - Hypercholesterolaemia [Unknown]
  - Tinea pedis [Unknown]
  - Anxiety [Unknown]
  - Sexual dysfunction [Not Recovered/Not Resolved]
  - Fatigue [Unknown]
  - Insomnia [Unknown]
  - Blood triglycerides increased [Unknown]
  - Gastrooesophageal reflux disease [Unknown]
  - Erectile dysfunction [Not Recovered/Not Resolved]
  - Depression [Unknown]
  - Myalgia [Unknown]
  - Rhinitis allergic [Unknown]
  - Pollakiuria [Unknown]
  - Melanocytic naevus [Unknown]
  - Ear disorder [Unknown]

NARRATIVE: CASE EVENT DATE: 2003
